FAERS Safety Report 8857529 (Version 1)
Quarter: 2012Q4

REPORT INFORMATION
  Report Type: Report from Study
  Country: US (occurrence: US)
  Receive Date: 20121024
  Receipt Date: 20121024
  Transmission Date: 20130627
  Serious: Yes (Life-Threatening, Hospitalization)
  Sender: FDA-Public Use
  Company Number: US-GLAXOSMITHKLINE-A0998449A

PATIENT
  Age: 13 Year
  Sex: Male
  Weight: 45 kg

DRUGS (12)
  1. MERCAPTOPURINE [Suspect]
     Indication: T-CELL TYPE ACUTE LEUKAEMIA
     Dates: end: 20090920
  2. VINCRISTINE [Suspect]
     Indication: T-CELL TYPE ACUTE LEUKAEMIA
     Dosage: 1.5MGM2 Cyclic
     Route: 042
     Dates: start: 20090402, end: 20090820
  3. DEXAMETHASONE [Suspect]
     Indication: NON-HODGKIN^S LYMPHOMA
     Dosage: 5MGM2 Cyclic
     Route: 048
     Dates: start: 20090402
  4. DAUNORUBICIN [Suspect]
     Indication: T-CELL TYPE ACUTE LEUKAEMIA
     Dates: start: 20090402, end: 20090420
  5. PEG-ASPARAGINASE [Suspect]
     Indication: T-CELL TYPE ACUTE LEUKAEMIA
     Route: 030
     Dates: end: 20090620
  6. METHOTREXATE [Suspect]
     Indication: NON-HODGKIN^S LYMPHOMA
     Route: 030
     Dates: start: 20090402, end: 20090820
  7. CYCLOPHOSPHAMIDE [Suspect]
     Indication: T-CELL TYPE ACUTE LEUKAEMIA
     Dosage: 1000MGM2 Single dose
     Route: 042
     Dates: start: 20090620, end: 20090620
  8. CYTARABINE [Suspect]
     Indication: NON-HODGKIN^S LYMPHOMA
     Dosage: 75MGM2 Cyclic
     Dates: end: 20090620
  9. THIOGUANINE [Suspect]
     Indication: T-CELL TYPE ACUTE LEUKAEMIA
     Dosage: 60MGM2 Cyclic
     Route: 048
  10. RADIATION [Concomitant]
     Indication: NON-HODGKIN^S LYMPHOMA
  11. TYLENOL WITH CODEINE [Concomitant]
  12. OXYCODONE [Concomitant]

REACTIONS (1)
  - Coagulopathy [Recovering/Resolving]
